FAERS Safety Report 20182977 (Version 1)
Quarter: 2021Q4

REPORT INFORMATION
  Report Type: Spontaneous
  Country: IN (occurrence: IN)
  Receive Date: 20211214
  Receipt Date: 20211214
  Transmission Date: 20220304
  Serious: Yes (Death, Other)
  Sender: FDA-Public Use
  Company Number: IN-PFIZER INC-2020037418

PATIENT
  Age: 25 Year
  Sex: Male

DRUGS (1)
  1. SUTENT [Suspect]
     Active Substance: SUNITINIB MALATE
     Indication: Gastrointestinal stromal tumour
     Dosage: 50 MG/ONCE A DAY, CYCLIC, 2 WEEKS ON AND 2WEEK OFF
     Route: 048
     Dates: start: 20191227, end: 20201002

REACTIONS (1)
  - Organ failure [Fatal]
